FAERS Safety Report 13910441 (Version 1)
Quarter: 2017Q3

REPORT INFORMATION
  Report Type: Spontaneous
  Country: US (occurrence: US)
  Receive Date: 20170825
  Receipt Date: 20170825
  Transmission Date: 20171127
  Serious: Yes (Hospitalization, Disabling, Other)
  Sender: FDA-Public Use
  Company Number: None

PATIENT
  Sex: Female
  Weight: 91.8 kg

DRUGS (1)
  1. XELJANZ [Suspect]
     Active Substance: TOFACITINIB CITRATE
     Indication: DRUG THERAPY
     Dosage: ?          QUANTITY:1 TABLET(S);?
     Route: 048
     Dates: start: 20151122, end: 20161104

REACTIONS (5)
  - Gait inability [None]
  - Vitamin B6 deficiency [None]
  - Nerve injury [None]
  - Dysstasia [None]
  - Neuropathy peripheral [None]

NARRATIVE: CASE EVENT DATE: 20160401
